FAERS Safety Report 6602193-4 (Version None)
Quarter: 2010Q1

REPORT INFORMATION
  Report Type: 
  Country: None (occurrence: None)
  Receive Date: 20100225
  Receipt Date: 20100215
  Transmission Date: 20100710
  Serious: No
  Sender: FDA-Public Use
  Company Number: US-ROCHE-686243

PATIENT
  Sex: Female

DRUGS (2)
  1. ISOTRETINOIN [Suspect]
     Indication: DRUG USE FOR UNKNOWN INDICATION
     Dosage: TAKEN DAILY. THE PATIENT WAS DISPENSED ACCUTANE 40 MG CAPSULE ON 18 JAN 2010.
     Route: 065
     Dates: start: 20100118, end: 20100212
  2. CLARAVIS [Suspect]
     Indication: DRUG USE FOR UNKNOWN INDICATION
     Dosage: THE PATIENT WAS DISPENSED CLARAVIS ON 19 DEC 2009.
     Route: 065
     Dates: start: 20091219

REACTIONS (2)
  - NO ADVERSE EVENT [None]
  - PREGNANCY [None]
